FAERS Safety Report 11293795 (Version 1)
Quarter: 2015Q3

REPORT INFORMATION
  Report Type: Spontaneous
  Country: US (occurrence: US)
  Receive Date: 20150722
  Receipt Date: 20150722
  Transmission Date: 20151125
  Serious: No
  Sender: FDA-Public Use
  Company Number: US-AMGEN-USASP2015046694

PATIENT
  Sex: Female

DRUGS (1)
  1. CORLANOR [Suspect]
     Active Substance: IVABRADINE HYDROCHLORIDE
     Indication: CARDIAC FAILURE CONGESTIVE
     Dosage: UNK UNK, UNK
     Route: 065
     Dates: start: 2015, end: 2015

REACTIONS (1)
  - Rash generalised [Unknown]

NARRATIVE: CASE EVENT DATE: 201505
